FAERS Safety Report 7769433-X (Version None)
Quarter: 2011Q3

REPORT INFORMATION
  Report Type: 
  Country: None (occurrence: None)
  Receive Date: 20110922
  Receipt Date: 20110322
  Transmission Date: 20111222
  Serious: No
  Sender: FDA-Public Use
  Company Number: US-ASTRAZENECA-2011SE07531

PATIENT
  Sex: Female

DRUGS (2)
  1. SEROQUEL [Suspect]
     Dosage: 100 MG AM AND 400 MG PM
     Route: 048
     Dates: start: 20101101
  2. LEXAPRO [Concomitant]

REACTIONS (1)
  - DRUG SCREEN FALSE POSITIVE [None]
